FAERS Safety Report 19854862 (Version 3)
Quarter: 2022Q2

REPORT INFORMATION
  Report Type: Other
  Country: BR (occurrence: BR)
  Receive Date: 20210920
  Receipt Date: 20220405
  Transmission Date: 20220721
  Serious: Yes (Other)
  Sender: FDA-Public Use
  Company Number: FR-TOLMAR, INC.-21FR029395

PATIENT
  Age: 7 Decade
  Sex: Male

DRUGS (2)
  1. ELIGARD [Suspect]
     Active Substance: LEUPROLIDE ACETATE
     Indication: Hormone-dependent prostate cancer
     Dosage: UNK
     Dates: start: 201904, end: 202004
  2. ELIGARD [Suspect]
     Active Substance: LEUPROLIDE ACETATE
     Indication: Hormone-refractory prostate cancer
     Dosage: UNK
     Dates: start: 202005, end: 202012

REACTIONS (2)
  - Prostate cancer [Unknown]
  - Drug ineffective [Unknown]
